FAERS Safety Report 10495033 (Version 2)
Quarter: 2014Q4

REPORT INFORMATION
  Report Type: Spontaneous
  Country: IT (occurrence: IT)
  Receive Date: 20141003
  Receipt Date: 20141003
  Transmission Date: 20150528
  Serious: Yes (Death)
  Sender: FDA-Public Use
  Company Number: IT-CUBIST PHARMACEUTICALS, INC.-2014CBST001125

PATIENT

DRUGS (16)
  1. CUBICIN [Suspect]
     Active Substance: DAPTOMYCIN
     Indication: OFF LABEL USE
  2. CALCIPARINE [Concomitant]
     Active Substance: HEPARIN CALCIUM
     Indication: THROMBOSIS
     Dosage: 0.5 ML, BID
     Route: 058
     Dates: start: 20130705, end: 20130718
  3. GABAPENTIN. [Concomitant]
     Active Substance: GABAPENTIN
     Indication: PAIN
     Dosage: 100 MG, TID
     Route: 048
     Dates: start: 20130705, end: 20130718
  4. ONDANSETRON [Concomitant]
     Active Substance: ONDANSETRON
     Indication: VOMITING
     Dosage: 4 MG, BID (EXTRAVASCULAR)
     Dates: start: 20130705, end: 20130718
  5. CUBICIN [Suspect]
     Active Substance: DAPTOMYCIN
     Indication: KLEBSIELLA INFECTION
     Dosage: 350 MG, ONCE A DAY (EXTRAVASCULAR)
     Dates: start: 20130705, end: 20130711
  6. CUBICIN [Suspect]
     Active Substance: DAPTOMYCIN
     Indication: DEVICE RELATED INFECTION
  7. CUBICIN [Suspect]
     Active Substance: DAPTOMYCIN
     Indication: KLEBSIELLA BACTERAEMIA
     Dosage: 5 MG/KG, ONCE A DAY (EXTRAVASCULAR)
     Dates: start: 20130705, end: 20130711
  8. MEROPENEM. [Concomitant]
     Active Substance: MEROPENEM
     Indication: KLEBSIELLA INFECTION
     Dosage: 1 G, BID (EXTRAVASCULAR)
     Dates: start: 20130705, end: 20130718
  9. ERTAPENEM [Concomitant]
     Active Substance: ERTAPENEM
     Indication: KLEBSIELLA INFECTION
     Dosage: 500 MG, ONCE DAILY (EXTRAVASCULAR)
     Dates: start: 20130712, end: 20130718
  10. OMEPRAZOL                          /00661201/ [Concomitant]
     Active Substance: OMEPRAZOLE
     Indication: GASTRITIS PROPHYLAXIS
     Dosage: 40 MG, BID (EXTRAVASCULAR)
     Dates: start: 20130705, end: 20130718
  11. LINEZOLID. [Concomitant]
     Active Substance: LINEZOLID
     Indication: INFECTION
     Dosage: 600 MG, BID (EXTRAVASCULAR)
     Dates: start: 20130714, end: 20130718
  12. TIGECYCLINE [Concomitant]
     Active Substance: TIGECYCLINE
     Indication: INFECTION
     Dosage: 50 MG, BID (EXTRAVASCULAR)
     Dates: start: 20130714, end: 20130718
  13. SODIUM POLYSTYRENE SULFONATE. [Concomitant]
     Active Substance: SODIUM POLYSTYRENE SULFONATE
     Indication: BLOOD POTASSIUM INCREASED
     Dosage: 30 G, TID
     Route: 054
     Dates: start: 20130714, end: 20130718
  14. MORPHINE [Concomitant]
     Active Substance: MORPHINE
     Indication: PAIN
     Dosage: 20 MG, CONTINUOUS INFUSION- EXTRAVASCULAR
     Dates: start: 20130705, end: 20130718
  15. SALINE [Concomitant]
     Active Substance: SODIUM CHLORIDE
     Indication: FLUID REPLACEMENT
     Dosage: 500 ML, CONTINUOUS INFUSION- EXTRAVASCULAR
     Dates: start: 20130705, end: 20130718
  16. ALBUMIN [Concomitant]
     Active Substance: ALBUMIN (HUMAN)
     Indication: PROTEIN TOTAL DECREASED
     Dosage: 20 %, BID (EXTRAVASCULAR)
     Dates: start: 20130705, end: 20130718

REACTIONS (4)
  - Cardiac failure acute [Fatal]
  - Klebsiella infection [Fatal]
  - No therapeutic response [Unknown]
  - Device related infection [Fatal]
